FAERS Safety Report 18851649 (Version 1)
Quarter: 2021Q1

REPORT INFORMATION
  Report Type: Spontaneous
  Country: US (occurrence: US)
  Receive Date: 20210204
  Receipt Date: 20210204
  Transmission Date: 20210420
  Serious: No
  Sender: FDA-Public Use
  Company Number: None

PATIENT
  Age: 48 Year
  Sex: Female

DRUGS (1)
  1. GOCOVRI [Suspect]
     Active Substance: AMANTADINE
     Route: 048
     Dates: start: 20200717

REACTIONS (6)
  - Oedema peripheral [None]
  - Paraesthesia [None]
  - Orthostatic hypotension [None]
  - Rash [None]
  - Therapy change [None]
  - Livedo reticularis [None]
